FAERS Safety Report 9780184 (Version 2)
Quarter: 2013Q4

REPORT INFORMATION
  Report Type: Spontaneous
  Country: IT (occurrence: IT)
  Receive Date: 20131223
  Receipt Date: 20131230
  Transmission Date: 20140711
  Serious: Yes (Other)
  Sender: FDA-Public Use
  Company Number: PHHY2013IT149253

PATIENT
  Age: 77 Year
  Sex: Male

DRUGS (10)
  1. ZOMETA [Suspect]
     Indication: PROSTATE CANCER METASTATIC
     Dosage: 4 MG, CYCLIC
     Route: 042
     Dates: start: 20121001, end: 20131029
  2. OMEPRAZOLE [Concomitant]
     Dosage: UNK UKN, UNK
  3. DELTACORTENE [Concomitant]
     Dosage: UNK UKN, UNK
  4. LASIX [Concomitant]
     Dosage: UNK UKN, UNK
  5. DILATREND [Concomitant]
     Dosage: UNK UKN, UNK
  6. OXYCONTIN [Concomitant]
     Dosage: UNK UKN, UNK
  7. CARDIRENE [Concomitant]
     Dosage: UNK UKN, UNK
  8. SEREUPIN [Concomitant]
     Dosage: UNK UKN, UNK
  9. ACTIQ [Concomitant]
     Dosage: UNK UKN, UNK
  10. DECAPEPTYL [Concomitant]
     Dosage: UNK UKN, UNK

REACTIONS (1)
  - Osteonecrosis of jaw [Not Recovered/Not Resolved]
